FAERS Safety Report 4732625-8 (Version None)
Quarter: 2005Q3

REPORT INFORMATION
  Report Type: 
  Country: None (occurrence: None)
  Receive Date: 20050801
  Receipt Date: 20050720
  Transmission Date: 20060218
  Serious: Yes (Other)
  Sender: FDA-Public Use
  Company Number: 2002057211

PATIENT
  Age: 60 Year
  Sex: Male
  Weight: 92.9874 kg

DRUGS (7)
  1. NEURONTIN [Suspect]
     Indication: NEUROPATHIC PAIN
     Dosage: 2400 MG (DAILY), ORAL
     Route: 048
     Dates: start: 20020501
  2. NEURONTIN [Suspect]
     Indication: NEUROSIS
     Dosage: 2400 MG (DAILY), ORAL
     Route: 048
     Dates: start: 20020501
  3. DARVOCET [Suspect]
     Indication: ILL-DEFINED DISORDER
     Dosage: ORAL
     Route: 048
  4. ULTRAM [Suspect]
     Indication: ILL-DEFINED DISORDER
  5. CLONOPIN (CLONAZEPAM) [Concomitant]
  6. VIOXX [Concomitant]
  7. VOLTAREN [Concomitant]

REACTIONS (15)
  - BACK PAIN [None]
  - BALANCE DISORDER [None]
  - CONDITION AGGRAVATED [None]
  - DRUG DEPENDENCE [None]
  - DRUG INEFFECTIVE [None]
  - DRUG WITHDRAWAL SYNDROME [None]
  - FLUID RETENTION [None]
  - HANGOVER [None]
  - MENTAL DISORDER [None]
  - MIGRAINE [None]
  - MUSCULAR WEAKNESS [None]
  - NEUROPATHY [None]
  - SWELLING [None]
  - TREMOR [None]
  - WEIGHT INCREASED [None]
